FAERS Safety Report 25378731 (Version 1)
Quarter: 2025Q2

REPORT INFORMATION
  Report Type: Spontaneous
  Country: US (occurrence: None)
  Receive Date: 20250530
  Receipt Date: 20250530
  Transmission Date: 20250716
  Serious: Yes (Hospitalization)
  Sender: FDA-CTU
  Company Number: None

PATIENT
  Age: 59 Year
  Sex: Female
  Weight: 54.9 kg

DRUGS (6)
  1. DEXAMETHASONE [Suspect]
     Active Substance: DEXAMETHASONE
  2. FLOXURIDINE [Suspect]
     Active Substance: FLOXURIDINE
  3. HEPARIN SODIUM [Suspect]
     Active Substance: HEPARIN SODIUM
  4. FLUOROURACIL\LEUCOVORIN CALCIUM\OXALIPLATIN [Concomitant]
     Active Substance: FLUOROURACIL\LEUCOVORIN CALCIUM\OXALIPLATIN
  5. HYDROCORTISONE [Concomitant]
     Active Substance: HYDROCORTISONE
  6. URSODIOL [Concomitant]
     Active Substance: URSODIOL

REACTIONS (3)
  - Constipation [None]
  - Diarrhoea [None]
  - Chromaturia [None]

NARRATIVE: CASE EVENT DATE: 20241231
